FAERS Safety Report 8363306-X (Version None)
Quarter: 2012Q2

REPORT INFORMATION
  Report Type: 
  Country: None (occurrence: None)
  Receive Date: 20120516
  Receipt Date: 20120514
  Transmission Date: 20120825
  Serious: No
  Sender: FDA-Public Use
  Company Number: US-PFIZER INC-2012116978

PATIENT
  Sex: Female
  Weight: 70 kg

DRUGS (1)
  1. IBUPROFEN (ADVIL) [Suspect]
     Indication: ARTHRITIS
     Dosage: UNK, AS NEEDED
     Dates: start: 20111201

REACTIONS (1)
  - MEDICATION RESIDUE [None]
